FAERS Safety Report 9704324 (Version 2)
Quarter: 2013Q4

REPORT INFORMATION
  Report Type: Spontaneous
  Country: FI (occurrence: FI)
  Receive Date: 20131122
  Receipt Date: 20131203
  Transmission Date: 20140711
  Serious: Yes (Hospitalization, Other)
  Sender: FDA-Public Use
  Company Number: FI-SA-2013SA118603

PATIENT
  Age: 70 Year
  Sex: Male

DRUGS (1)
  1. MULTAQ [Suspect]
     Indication: ARRHYTHMIA
     Route: 048
     Dates: start: 201208, end: 201309

REACTIONS (10)
  - Rectal ulcer [Recovered/Resolved]
  - Drug hypersensitivity [Not Recovered/Not Resolved]
  - Asthma [Recovered/Resolved]
  - Lung disorder [Recovered/Resolved]
  - Liver disorder [Not Recovered/Not Resolved]
  - Renal disorder [Not Recovered/Not Resolved]
  - Panophthalmitis [Not Recovered/Not Resolved]
  - Skin disorder [Recovered/Resolved]
  - Erythema [Recovered/Resolved]
  - Eyelids pruritus [Recovered/Resolved]
